FAERS Safety Report 8791224 (Version 1)
Quarter: 2012Q4

REPORT INFORMATION
  Report Type: Spontaneous
  Country: US (occurrence: None)
  Receive Date: 20120913
  Receipt Date: 20120913
  Transmission Date: 20130627
  Serious: No
  Sender: FDA-Public Use
  Company Number: None

PATIENT
  Sex: Male
  Weight: 86.18 kg

DRUGS (1)
  1. LYRICA [Suspect]
     Indication: NEUROPATHY
     Dosage: 50 mg  3 times per day  March, 3 weeks

REACTIONS (4)
  - Tremor [None]
  - Muscle spasms [None]
  - Alopecia [None]
  - Nail disorder [None]
